FAERS Safety Report 4296389-7 (Version None)
Quarter: 2004Q1

REPORT INFORMATION
  Report Type: 
  Country: None (occurrence: None)
  Receive Date: 20040213
  Receipt Date: 20040213
  Transmission Date: 20041129
  Serious: Yes (Hospitalization)
  Sender: FDA-Public Use
  Company Number: None

PATIENT
  Sex: Male
  Weight: 86.1834 kg

DRUGS (4)
  1. LEXAPRO [Suspect]
     Indication: DEPRESSION
     Dosage: 10 MG PO QD PRIOR TO ADMISSION
     Route: 048
  2. VICODIN ES [Concomitant]
  3. SOMA [Concomitant]
  4. BENADRYL [Concomitant]

REACTIONS (2)
  - DIZZINESS [None]
  - FATIGUE [None]
